FAERS Safety Report 24730878 (Version 1)
Quarter: 2024Q4

REPORT INFORMATION
  Report Type: Spontaneous
  Country: US (occurrence: US)
  Receive Date: 20241213
  Receipt Date: 20241213
  Transmission Date: 20250115
  Serious: No
  Sender: Harrow Health
  Company Number: US-IMP-2024001112

PATIENT
  Sex: Female

DRUGS (3)
  1. VEVYE [Suspect]
     Active Substance: CYCLOSPORINE
     Indication: Product used for unknown indication
     Route: 047
  2. UNSPECIFIED INGREDIENT [Suspect]
     Active Substance: UNSPECIFIED INGREDIENT
     Indication: Product used for unknown indication
  3. CLARITIN [Suspect]
     Active Substance: LORATADINE
     Indication: Product used for unknown indication

REACTIONS (3)
  - Eye irritation [Unknown]
  - Lacrimation increased [Unknown]
  - Eye pruritus [Unknown]
